FAERS Safety Report 8790807 (Version 1)
Quarter: 2012Q4

REPORT INFORMATION
  Report Type: Spontaneous
  Country: US (occurrence: None)
  Receive Date: 20120913
  Receipt Date: 20120913
  Transmission Date: 20130627
  Serious: Yes (Other)
  Sender: FDA-Public Use
  Company Number: None

PATIENT
  Sex: Female
  Weight: 74.84 kg

DRUGS (1)
  1. VITAMINS WITH MINERALS [Suspect]
     Dosage: 1- daily 3-21-12 until I stopped in May 9th 2012

REACTIONS (11)
  - Fall [None]
  - Joint injury [None]
  - Face injury [None]
  - Alopecia [None]
  - Abdominal discomfort [None]
  - Vomiting [None]
  - Headache [None]
  - Fatigue [None]
  - Urticaria [None]
  - Visual impairment [None]
  - Hypothyroidism [None]
